FAERS Safety Report 18935668 (Version 1)
Quarter: 2021Q1

REPORT INFORMATION
  Report Type: Spontaneous
  Country: US (occurrence: US)
  Receive Date: 20210225
  Receipt Date: 20210225
  Transmission Date: 20210420
  Serious: No
  Sender: FDA-Public Use
  Company Number: US-STRIDES ARCOLAB LIMITED-2021SP000893

PATIENT

DRUGS (1)
  1. CINACALCET. [Suspect]
     Active Substance: CINACALCET
     Indication: HYPERPARATHYROIDISM SECONDARY
     Dosage: 0.2 MG/KG/DAY (INITIAL DOSE)
     Route: 065

REACTIONS (1)
  - Fracture [Unknown]
